FAERS Safety Report 8437175-3 (Version None)
Quarter: 2012Q2

REPORT INFORMATION
  Report Type: 
  Country: None (occurrence: None)
  Receive Date: 20120614
  Receipt Date: 20120229
  Transmission Date: 20120825
  Serious: No
  Sender: FDA-Public Use
  Company Number: US-AMGEN-USASP2011064292

PATIENT

DRUGS (13)
  1. PROLIA [Suspect]
     Indication: OSTEOPOROSIS POSTMENOPAUSAL
     Dosage: 60 MG, UNK
     Dates: start: 20101001
  2. FLUOXETINE [Concomitant]
     Dosage: UNK MG, UNK
  3. ZETIA [Concomitant]
     Indication: BLOOD CHOLESTEROL INCREASED
     Dosage: UNK MG, UNK
  4. TRAZODONE HCL [Concomitant]
     Dosage: 1 UNK, UNK
  5. FISH OIL [Concomitant]
     Dosage: UNK
  6. SINGULAIR [Concomitant]
     Dosage: UNK MG, UNK
  7. SYNTHROID [Concomitant]
     Dosage: UNK
  8. VITAMIN B-12 [Concomitant]
     Route: 060
  9. VITAMIN B6 [Concomitant]
  10. GAMMAGARD [Concomitant]
     Dosage: UNK
  11. L METHYLFOLATE [Concomitant]
     Dosage: UNK
  12. ASPIRIN [Concomitant]
  13. FUROSEMIDE [Concomitant]

REACTIONS (1)
  - BLOOD CHOLESTEROL INCREASED [None]
